FAERS Safety Report 6513020-8 (Version None)
Quarter: 2009Q4

REPORT INFORMATION
  Report Type: 
  Country: None (occurrence: None)
  Receive Date: 20091222
  Receipt Date: 20091222
  Transmission Date: 20100525
  Serious: Yes (Hospitalization)
  Sender: FDA-Public Use
  Company Number: None

PATIENT
  Age: 86 Year
  Sex: Male
  Weight: 80.3 kg

DRUGS (2)
  1. MELOXICAM [Suspect]
     Dosage: 15 MG EVERY DAY PO
     Route: 048
     Dates: start: 20080716, end: 20091215
  2. ASPIRIN [Suspect]
     Dosage: 81 MG EVERY DAY PO
     Route: 048

REACTIONS (3)
  - GASTRIC HAEMORRHAGE [None]
  - MELAENA [None]
  - UPPER GASTROINTESTINAL HAEMORRHAGE [None]
